FAERS Safety Report 21241943 (Version 2)
Quarter: 2022Q4

REPORT INFORMATION
  Report Type: Spontaneous
  Country: US (occurrence: US)
  Receive Date: 20220823
  Receipt Date: 20221017
  Transmission Date: 20230113
  Serious: No
  Sender: FDA-Public Use
  Company Number: US-TEVA-2022-US-2062538

PATIENT
  Age: 65 Year
  Sex: Female
  Weight: 58.97 kg

DRUGS (2)
  1. AJOVY [Suspect]
     Active Substance: FREMANEZUMAB-VFRM
     Indication: Migraine
     Dosage: STRENGTH: 225/1.5 MG/ML
     Route: 065
     Dates: start: 2021
  2. AJOVY [Suspect]
     Active Substance: FREMANEZUMAB-VFRM

REACTIONS (7)
  - Body height decreased [Unknown]
  - Injection site pain [Recovered/Resolved with Sequelae]
  - Device issue [Unknown]
  - Accidental exposure to product [Unknown]
  - Liquid product physical issue [Unknown]
  - Device difficult to use [Unknown]
  - Device leakage [Unknown]

NARRATIVE: CASE EVENT DATE: 20220801
